FAERS Safety Report 8139061-5 (Version None)
Quarter: 2012Q1

REPORT INFORMATION
  Report Type: 
  Country: None (occurrence: None)
  Receive Date: 20120215
  Receipt Date: 20120210
  Transmission Date: 20120608
  Serious: Yes (Disabling)
  Sender: FDA-Public Use
  Company Number: US-PFIZER INC-2012037018

PATIENT
  Sex: Male

DRUGS (6)
  1. EFFEXOR XR [Suspect]
     Dosage: 150 MG, 1 TAB, 2X/DAY
  2. SPIRIVA [Concomitant]
     Dosage: UNK
  3. OXYGEN [Concomitant]
     Dosage: UNK
  4. ADVAIR DISKUS 100/50 [Concomitant]
     Dosage: UNK
  5. ZYPREXA [Concomitant]
     Dosage: UNK
  6. ALBUTEROL [Concomitant]
     Dosage: UNK

REACTIONS (3)
  - PULMONARY MASS [None]
  - IMPAIRED WORK ABILITY [None]
  - CHRONIC OBSTRUCTIVE PULMONARY DISEASE [None]
